FAERS Safety Report 20038337 (Version 1)
Quarter: 2021Q4

REPORT INFORMATION
  Report Type: Spontaneous
  Country: DE (occurrence: None)
  Receive Date: 20211105
  Receipt Date: 20211105
  Transmission Date: 20220303
  Serious: Yes (Other)
  Sender: FDA-Public Use
  Company Number: DE-Merck Healthcare KGaA-9277536

PATIENT
  Sex: Male

DRUGS (1)
  1. AVELUMAB [Suspect]
     Active Substance: AVELUMAB
     Indication: Bladder transitional cell carcinoma

REACTIONS (6)
  - Metastases to central nervous system [Unknown]
  - Hemiparesis [Unknown]
  - Memory impairment [Unknown]
  - Aphasia [Unknown]
  - Gait disturbance [Unknown]
  - Pruritus [Unknown]

NARRATIVE: CASE EVENT DATE: 20210501
